FAERS Safety Report 7258898-8 (Version None)
Quarter: 2011Q1

REPORT INFORMATION
  Report Type: 
  Country: None (occurrence: None)
  Receive Date: 20110129
  Receipt Date: 20100609
  Transmission Date: 20110831
  Serious: No
  Sender: FDA-Public Use
  Company Number: US-ABBOTT-10P-163-0650884-00

PATIENT
  Age: 47 Year
  Sex: Female
  Weight: 64.468 kg

DRUGS (11)
  1. PREDNISONE [Concomitant]
     Dates: start: 20100401
  2. ENTOCORT EC [Concomitant]
     Dates: start: 20100401
  3. PREDNISONE [Concomitant]
     Indication: CROHN'S DISEASE
  4. VITAMIN D [Concomitant]
     Indication: PRODUCT USED FOR UNKNOWN INDICATION
  5. HUMIRA [Suspect]
     Indication: CROHN'S DISEASE
     Route: 058
     Dates: start: 20090401, end: 20091201
  6. POTASSIUM [Concomitant]
     Indication: PRODUCT USED FOR UNKNOWN INDICATION
  7. HUMIRA [Suspect]
     Route: 058
     Dates: start: 20091201, end: 20100401
  8. PENTASA [Concomitant]
     Indication: CROHN'S DISEASE
  9. PENTASA [Concomitant]
     Dates: start: 20100401
  10. IRON [Concomitant]
     Indication: MINERAL SUPPLEMENTATION
  11. ENTOCORT EC [Concomitant]
     Indication: CROHN'S DISEASE

REACTIONS (14)
  - UPPER RESPIRATORY TRACT INFECTION [None]
  - VISUAL IMPAIRMENT [None]
  - PYREXIA [None]
  - MYALGIA [None]
  - RESPIRATORY TRACT CONGESTION [None]
  - HEADACHE [None]
  - CROHN'S DISEASE [None]
  - MEMORY IMPAIRMENT [None]
  - PARANASAL SINUS HYPERSECRETION [None]
  - EAR PAIN [None]
  - ALOPECIA [None]
  - PRURITUS GENERALISED [None]
  - OROPHARYNGEAL PAIN [None]
  - DIZZINESS [None]
